FAERS Safety Report 8532773-0 (Version None)
Quarter: 2012Q3

REPORT INFORMATION
  Report Type: 
  Country: None (occurrence: None)
  Receive Date: 20120724
  Receipt Date: 20120720
  Transmission Date: 20120928
  Serious: No
  Sender: FDA-Public Use
  Company Number: US-BAYER-2012-073329

PATIENT
  Age: 53 Year
  Sex: Female

DRUGS (1)
  1. BETASERON [Suspect]
     Indication: DEPRESSION
     Dosage: 0.3 MG, QOD
     Route: 058
     Dates: start: 20100421

REACTIONS (3)
  - CRYING [None]
  - DEPRESSED MOOD [None]
  - DEPRESSION [None]
